FAERS Safety Report 6674131-X (Version None)
Quarter: 2010Q2

REPORT INFORMATION
  Report Type: 
  Country: None (occurrence: None)
  Receive Date: 20100409
  Receipt Date: 20100401
  Transmission Date: 20101027
  Serious: Yes (Hospitalization)
  Sender: FDA-Public Use
  Company Number: US-BRISTOL-MYERS SQUIBB COMPANY-15042435

PATIENT
  Age: 36 Year
  Sex: Female

DRUGS (2)
  1. ARIPIPRAZOLE [Suspect]
     Indication: SCHIZOPHRENIA
     Dosage: DEPOT INJ
     Route: 030
     Dates: start: 20090804, end: 20100317
  2. ATIVAN [Concomitant]
     Route: 048
     Dates: start: 20100318, end: 20100324

REACTIONS (1)
  - SUICIDAL IDEATION [None]
